FAERS Safety Report 7278486-7 (Version None)
Quarter: 2011Q1

REPORT INFORMATION
  Report Type: 
  Country: None (occurrence: None)
  Receive Date: 20110207
  Receipt Date: 20110204
  Transmission Date: 20110831
  Serious: Yes (Hospitalization)
  Sender: FDA-Public Use
  Company Number: US-B.I. PHARMACEUTICALS,INC./RIDGEFIELD-2010-BP-10320BP

PATIENT
  Sex: Female

DRUGS (3)
  1. STALEVO 100 [Suspect]
     Indication: PARKINSON'S DISEASE
     Dosage: 600 MG
  2. KLONOPIN [Concomitant]
     Indication: PARKINSON'S DISEASE
     Dosage: 0.5 MG
     Route: 048
  3. MIRAPEX [Suspect]
     Indication: PARKINSON'S DISEASE
     Route: 048
     Dates: start: 20100801, end: 20100907

REACTIONS (2)
  - OEDEMA PERIPHERAL [None]
  - HALLUCINATION, VISUAL [None]
